FAERS Safety Report 9887480 (Version 3)
Quarter: 2016Q2

REPORT INFORMATION
  Report Type: Spontaneous
  Country: FR (occurrence: FR)
  Receive Date: 20140211
  Receipt Date: 20160604
  Transmission Date: 20160815
  Serious: Yes (Death, Life-Threatening, Hospitalization, Other)
  Sender: FDA-Public Use
  Company Number: FR-ASTRAZENECA-2014SE09313

PATIENT
  Age: 20917 Day
  Sex: Male

DRUGS (16)
  1. HEPARIN CHOAY [Suspect]
     Active Substance: HEPARIN SODIUM
     Indication: PRODUCT USED FOR UNKNOWN INDICATION
     Route: 058
     Dates: start: 20131224, end: 20140108
  2. NOXAFIL [Suspect]
     Active Substance: POSACONAZOLE
     Indication: PRODUCT USED FOR UNKNOWN INDICATION
     Dosage: 400 MG/ML, 300 MG THREE TIMES A DAY
     Route: 048
     Dates: start: 20131205, end: 20140109
  3. SOLU-MEDROL [Concomitant]
     Active Substance: METHYLPREDNISOLONE SODIUM SUCCINATE
     Indication: PRODUCT USED FOR UNKNOWN INDICATION
     Dates: start: 20131214, end: 20140102
  4. TAZOCILLINE [Suspect]
     Active Substance: PIPERACILLIN SODIUM\TAZOBACTAM SODIUM
     Indication: PRODUCT USED FOR UNKNOWN INDICATION
     Dosage: NON AZ PRODUCT, 4G/500 MG, 1 DF FOUR TIMES A DAY, 16 G DAILY
     Route: 042
     Dates: start: 20131230, end: 20140103
  5. ZELITREX [Suspect]
     Active Substance: VALACYCLOVIR HYDROCHLORIDE
     Indication: PRODUCT USED FOR UNKNOWN INDICATION
     Route: 048
     Dates: start: 20131203, end: 20140112
  6. FLAGYL [Concomitant]
     Active Substance: METRONIDAZOLE\METRONIDAZOLE HYDROCHLORIDE
     Indication: PRODUCT USED FOR UNKNOWN INDICATION
     Dates: start: 20140103, end: 20140103
  7. CYCLOSPORINE. [Suspect]
     Active Substance: CYCLOSPORINE
     Indication: PRODUCT USED FOR UNKNOWN INDICATION
     Route: 042
     Dates: start: 20131214, end: 20140105
  8. MOTILIUM [Concomitant]
     Active Substance: DOMPERIDONE
     Indication: PRODUCT USED FOR UNKNOWN INDICATION
     Dates: start: 20131218, end: 20131224
  9. OROKEN [Concomitant]
     Active Substance: CEFIXIME
     Indication: DIVERTICULITIS
     Dates: start: 201311
  10. ATGAM [Concomitant]
     Active Substance: EQUINE THYMOCYTE IMMUNE GLOBULIN
     Indication: PRODUCT USED FOR UNKNOWN INDICATION
     Dates: start: 20131214, end: 20131217
  11. INEXIUM [Suspect]
     Active Substance: ESOMEPRAZOLE
     Indication: PRODUCT USED FOR UNKNOWN INDICATION
     Route: 048
     Dates: start: 20131205, end: 20140111
  12. CUBICIN [Suspect]
     Active Substance: DAPTOMYCIN
     Indication: PRODUCT USED FOR UNKNOWN INDICATION
     Route: 042
     Dates: start: 20140103, end: 20140107
  13. CEFEPIME [Suspect]
     Active Substance: CEFEPIME HYDROCHLORIDE
     Indication: BACTERAEMIA
     Route: 042
     Dates: start: 20131224, end: 20131229
  14. TIENAM [Concomitant]
     Active Substance: CILASTATIN SODIUM\IMIPENEM
     Indication: PRODUCT USED FOR UNKNOWN INDICATION
     Dates: start: 20131206, end: 20131220
  15. VANCOMYCIN [Suspect]
     Active Substance: VANCOMYCIN
     Indication: BACTERAEMIA
     Dosage: 2.5 G QD (5 DOSEFORMS DAILY)
     Route: 042
     Dates: start: 20131224, end: 20140102
  16. AMIKACIDE [Suspect]
     Active Substance: AMIKACIN
     Indication: BACTERAEMIA
     Route: 042
     Dates: start: 20131226, end: 20131230

REACTIONS (16)
  - Bacteraemia [Unknown]
  - Myalgia [Unknown]
  - Platelet count decreased [Unknown]
  - Septic shock [Unknown]
  - Skin mass [Unknown]
  - Generalised oedema [Unknown]
  - Confusional state [Unknown]
  - Pyrexia [Unknown]
  - Inflammation [Unknown]
  - C-reactive protein increased [Unknown]
  - Diffuse cutaneous mastocytosis [Unknown]
  - Generalised oedema [Unknown]
  - Circulatory collapse [Fatal]
  - Skin necrosis [Unknown]
  - Hypoalbuminaemia [Unknown]
  - Therapy cessation [Unknown]

NARRATIVE: CASE EVENT DATE: 20140104
